FAERS Safety Report 6085552-0 (Version None)
Quarter: 2009Q1

REPORT INFORMATION
  Report Type: 
  Country: None (occurrence: None)
  Receive Date: 20090220
  Receipt Date: 20090209
  Transmission Date: 20090719
  Serious: Yes (Hospitalization, Other)
  Sender: FDA-Public Use
  Company Number: US-PFIZER INC-2009167965

PATIENT
  Sex: Female
  Weight: 65.317 kg

DRUGS (3)
  1. LYRICA [Suspect]
     Indication: HERPES ZOSTER
     Dates: start: 20081001
  2. VICODIN [Suspect]
     Indication: MUSCULOSKELETAL PAIN
     Dosage: FREQUENCY: EVERYDAY;
     Dates: start: 20080101
  3. FAMCICLOVIR [Concomitant]
     Dates: start: 20081001

REACTIONS (4)
  - EXOSTOSIS [None]
  - ROTATOR CUFF SYNDROME [None]
  - SOMNOLENCE [None]
  - WEIGHT INCREASED [None]
